FAERS Safety Report 4328341-7 (Version None)
Quarter: 2004Q1

REPORT INFORMATION
  Report Type: 
  Country: None (occurrence: None)
  Receive Date: 20040325
  Receipt Date: 20040224
  Transmission Date: 20041129
  Serious: Yes (Hospitalization)
  Sender: FDA-Public Use
  Company Number: PHEH2003US10001

PATIENT
  Age: 4 Year
  Sex: Male
  Weight: 20 kg

DRUGS (2)
  1. TRILEPTAL [Suspect]
     Indication: PARTIAL SEIZURES
     Dosage: 210 MG, BID, ORAL; 4 ML, BID, ORAL
     Route: 048
     Dates: start: 20030701, end: 20031101
  2. TRILEPTAL [Suspect]
     Indication: PARTIAL SEIZURES
     Dosage: 210 MG, BID, ORAL; 4 ML, BID, ORAL
     Route: 048
     Dates: start: 20030704, end: 20031106

REACTIONS (10)
  - ABNORMAL BEHAVIOUR [None]
  - AMNESIA [None]
  - ANGER [None]
  - ATAXIA [None]
  - CONVULSION [None]
  - DYSARTHRIA [None]
  - ILLUSION [None]
  - IMPULSIVE BEHAVIOUR [None]
  - STATUS EPILEPTICUS [None]
  - VISUAL DISTURBANCE [None]
